FAERS Safety Report 11464360 (Version 2)
Quarter: 2015Q3

REPORT INFORMATION
  Report Type: Spontaneous
  Country: US (occurrence: US)
  Receive Date: 20150831
  Receipt Date: 20150903
  Transmission Date: 20151125
  Serious: Yes (Other)
  Sender: FDA-Public Use
  Company Number: US-ELI_LILLY_AND_COMPANY-US201106006964

PATIENT
  Sex: Female

DRUGS (14)
  1. IMURAN [Concomitant]
     Active Substance: AZATHIOPRINE
  2. FENTANYL. [Concomitant]
     Active Substance: FENTANYL
  3. LYRICA [Concomitant]
     Active Substance: PREGABALIN
  4. VALIUM [Concomitant]
     Active Substance: DIAZEPAM
  5. TEMAZEPAM. [Concomitant]
     Active Substance: TEMAZEPAM
  6. AMITRIPTYLINE [Concomitant]
     Active Substance: AMITRIPTYLINE
     Indication: HEADACHE
     Dosage: UNK, UNKNOWN
  7. COLCHICINE. [Concomitant]
     Active Substance: COLCHICINE
  8. MILNACIPRAN HYDROCHLORIDE. [Concomitant]
     Active Substance: MILNACIPRAN HYDROCHLORIDE
     Dosage: UNK, UNKNOWN
     Dates: end: 201106
  9. PROVIGIL [Concomitant]
     Active Substance: MODAFINIL
  10. SEROQUEL [Concomitant]
     Active Substance: QUETIAPINE FUMARATE
     Indication: BIPOLAR DISORDER
     Dosage: UNK, UNKNOWN
     Dates: end: 201106
  11. LAMICTAL [Concomitant]
     Active Substance: LAMOTRIGINE
  12. PERCOCET [Concomitant]
     Active Substance: ACETAMINOPHEN\OXYCODONE HYDROCHLORIDE
  13. PREDNISONE. [Concomitant]
     Active Substance: PREDNISONE
  14. CYMBALTA [Suspect]
     Active Substance: DULOXETINE HYDROCHLORIDE
     Indication: BIPOLAR DISORDER
     Dosage: 30 MG, QD
     Route: 048
     Dates: start: 20110602, end: 20110609

REACTIONS (1)
  - Serotonin syndrome [Recovered/Resolved]
